FAERS Safety Report 8338613-7 (Version None)
Quarter: 2012Q2

REPORT INFORMATION
  Report Type: 
  Country: None (occurrence: None)
  Receive Date: 20120504
  Receipt Date: 20120402
  Transmission Date: 20120825
  Serious: Yes (Hospitalization)
  Sender: FDA-Public Use
  Company Number: US-BAXTER-2010BH027530

PATIENT
  Sex: Male
  Weight: 107 kg

DRUGS (16)
  1. FLUTICASONE PROPIONATE [Concomitant]
     Dates: start: 20100601, end: 20100910
  2. GAMMAGARD LIQUID [Suspect]
     Route: 042
     Dates: start: 20100928, end: 20100928
  3. ARICEPT [Concomitant]
     Route: 048
     Dates: start: 20081001
  4. CELEXA [Concomitant]
     Route: 048
     Dates: start: 20090201
  5. NAMENDA [Concomitant]
     Route: 048
     Dates: start: 20080401
  6. PANTOPRAZOLE [Concomitant]
     Route: 048
     Dates: start: 20010101
  7. SYNTHROID [Concomitant]
     Route: 048
     Dates: start: 20100212
  8. GAMMAGARD LIQUID [Suspect]
     Route: 042
     Dates: start: 20100719
  9. GAMMAGARD LIQUID [Suspect]
     Route: 042
     Dates: start: 20101026, end: 20101026
  10. MULTI-VITAMINS [Concomitant]
     Route: 048
     Dates: start: 20000101
  11. GAMMAGARD LIQUID [Suspect]
     Route: 042
     Dates: start: 20101012, end: 20101012
  12. CLARITIN [Concomitant]
     Route: 048
     Dates: start: 20100901
  13. FOLIC ACID W/VITAMIN B12 [Concomitant]
     Route: 048
     Dates: start: 20080401
  14. ACETYLCYSTEINE [Concomitant]
     Route: 048
     Dates: start: 20080401
  15. VITAMIN C [Concomitant]
     Route: 048
     Dates: start: 20000101
  16. LIPITOR [Concomitant]
     Route: 048
     Dates: start: 20091221, end: 20100910

REACTIONS (1)
  - DEEP VEIN THROMBOSIS [None]
